FAERS Safety Report 13178518 (Version 1)
Quarter: 2017Q1

REPORT INFORMATION
  Report Type: Spontaneous
  Country: US (occurrence: US)
  Receive Date: 20170202
  Receipt Date: 20170202
  Transmission Date: 20170428
  Serious: Yes (Other)
  Sender: FDA-Public Use
  Company Number: US-009507513-1701USA010759

PATIENT
  Age: 41 Year
  Sex: Female
  Weight: 95.24 kg

DRUGS (1)
  1. NUVARING [Suspect]
     Active Substance: ETHINYL ESTRADIOL\ETONOGESTREL
     Indication: CONTRACEPTION
     Dosage: UNK; 3 WEEKS IN 1 WEEK OUT
     Route: 067
     Dates: start: 201611

REACTIONS (1)
  - Thrombosis [Unknown]

NARRATIVE: CASE EVENT DATE: 201612
